FAERS Safety Report 5307316-5 (Version None)
Quarter: 2007Q2

REPORT INFORMATION
  Report Type: 
  Country: None (occurrence: None)
  Receive Date: 20070425
  Receipt Date: 20070417
  Transmission Date: 20071010
  Serious: Yes (Disabling)
  Sender: FDA-Public Use
  Company Number: HQWYE408124JAN07

PATIENT
  Sex: Female

DRUGS (2)
  1. EFFEXOR XR [Suspect]
     Indication: DEPRESSION
     Route: 048
     Dates: start: 20040902
  2. BUSPIRONE HCL [Concomitant]
     Dates: start: 20060101, end: 20060401

REACTIONS (1)
  - OPEN ANGLE GLAUCOMA [None]
